FAERS Safety Report 6736459-4 (Version None)
Quarter: 2010Q2

REPORT INFORMATION
  Report Type: 
  Country: None (occurrence: None)
  Receive Date: 20100519
  Receipt Date: 20100512
  Transmission Date: 20101027
  Serious: Yes (Other)
  Sender: FDA-Public Use
  Company Number: 2010SP024545

PATIENT
  Age: 69 Year
  Sex: Male

DRUGS (2)
  1. ORGARAN [Suspect]
     Indication: DRUG USE FOR UNKNOWN INDICATION
     Dosage: 750 IU;BID;SC
     Route: 058
     Dates: start: 20100302, end: 20100304
  2. HEPARIN SODIUM [Suspect]
     Indication: DRUG USE FOR UNKNOWN INDICATION
     Dosage: SC
     Route: 058
     Dates: start: 20100223, end: 20100301

REACTIONS (2)
  - HEPARIN-INDUCED THROMBOCYTOPENIA [None]
  - ISCHAEMIC STROKE [None]
